FAERS Safety Report 5507657-2 (Version None)
Quarter: 2007Q4

REPORT INFORMATION
  Report Type: 
  Country: None (occurrence: None)
  Receive Date: 20071106
  Receipt Date: 20071030
  Transmission Date: 20080405
  Serious: Yes (Other)
  Sender: FDA-Public Use
  Company Number: CN-JNJFOC-20071100028

PATIENT
  Age: 2 Year
  Sex: Female
  Weight: 11.5 kg

DRUGS (2)
  1. ANTUSS INFANTS DECONGESTANT + COUGH [Suspect]
     Indication: NASAL DECONGESTION THERAPY
     Route: 048
  2. ANTUSS INFANTS DECONGESTANT + COUGH [Suspect]
     Indication: COUGH
     Route: 048

REACTIONS (1)
  - ACCIDENTAL OVERDOSE [None]
